FAERS Safety Report 5086188-0 (Version None)
Quarter: 2006Q3

REPORT INFORMATION
  Report Type: 
  Country: None (occurrence: None)
  Receive Date: 20060818
  Receipt Date: 20060810
  Transmission Date: 20061208
  Serious: Yes (Other)
  Sender: FDA-Public Use
  Company Number: 2006-08-0626

PATIENT
  Age: 57 Year
  Sex: Female

DRUGS (4)
  1. PEG-INTRON [Suspect]
     Indication: HEPATITIS C
     Dosage: 80 MCG QW SUBCUTANEOUS
     Route: 058
     Dates: start: 20060725, end: 20060801
  2. REBETOL [Suspect]
     Indication: HEPATITIS C
     Dosage: 600 MG PO ORAL
     Route: 048
     Dates: start: 20060725
  3. REMICUT CAPSULES [Concomitant]
  4. THYRADIN S [Concomitant]

REACTIONS (3)
  - BLOOD PRESSURE DECREASED [None]
  - LOSS OF CONSCIOUSNESS [None]
  - SHOCK [None]
